FAERS Safety Report 14330122 (Version 2)
Quarter: 2018Q1

REPORT INFORMATION
  Report Type: Spontaneous
  Country: CH (occurrence: CH)
  Receive Date: 20171227
  Receipt Date: 20180226
  Transmission Date: 20180509
  Serious: Yes (Disabling)
  Sender: FDA-Public Use
  Company Number: CH-PFIZER INC-2017544027

PATIENT
  Age: 60 Year
  Sex: Female

DRUGS (12)
  1. DAUNOBLASTINA [Suspect]
     Active Substance: DAUNORUBICIN
     Indication: ACUTE MYELOID LEUKAEMIA
     Dosage: APPLICATION OF 64 MG/M2 AT DECEMBER 5TH, 7TH AND 9TH.
     Route: 041
     Dates: start: 20171205, end: 20171209
  2. URSOFALK [Concomitant]
     Active Substance: URSODIOL
     Dosage: 500MG EVERY 12 HOURS (1-0-1-0)
     Route: 048
     Dates: start: 20171205
  3. ONDANSETRON [Concomitant]
     Active Substance: ONDANSETRON
     Indication: PROPHYLAXIS OF NAUSEA AND VOMITING
     Dosage: 8MG, EVERY 12 HOURS (1-0-1-0) , FROM 05DEC UNTIL 11DEC2017, THEN RESERVE MEDICATION AND APPLICATION
     Route: 048
     Dates: start: 20171205, end: 20171211
  4. ZYLORIC [Suspect]
     Active Substance: ALLOPURINOL
     Indication: CHEMOTHERAPY
     Dosage: 300MG, 1X/DAY
     Route: 048
     Dates: start: 20171205, end: 20171211
  5. VI-DE 3 [Concomitant]
     Active Substance: CHOLECALCIFEROL
     Dosage: 15 GTT, 1X/DAY (0-0-15-0)
     Route: 048
     Dates: start: 20171204
  6. VALTREX [Concomitant]
     Active Substance: VALACYCLOVIR HYDROCHLORIDE
     Dosage: 500MG EVERY 12 HOURS (1-0-1-0)
     Route: 048
     Dates: start: 20171206
  7. PRIMPERAN [Concomitant]
     Active Substance: METOCLOPRAMIDE HYDROCHLORIDE
     Dosage: 10MG EVERY 12 HOURS (1-0-1-0)
     Route: 041
     Dates: start: 20171208
  8. FORTECORTIN /00016001/ [Suspect]
     Active Substance: DEXAMETHASONE
     Indication: CHEMOTHERAPY
     Dosage: 4 MG, 2X/DAY (EVERY 12 HOURS)
     Route: 048
     Dates: start: 20171205, end: 20171210
  9. CYTOSAR [Suspect]
     Active Substance: CYTARABINE
     Indication: ACUTE MYELOID LEUKAEMIA
     Dosage: 100MG/M2, 2X/DAY
     Route: 041
     Dates: start: 20171205, end: 20171210
  10. CLEXANE [Concomitant]
     Active Substance: ENOXAPARIN SODIUM
     Indication: THROMBOSIS PROPHYLAXIS
     Dosage: 40MG, 1X/DAY (0-0-1-0)
     Route: 058
     Dates: start: 20171204
  11. NEXIUM [Concomitant]
     Active Substance: ESOMEPRAZOLE MAGNESIUM
     Dosage: 40MG, 1X/DAY (1-0-0-0)
     Route: 048
     Dates: start: 20171205
  12. AMBISOME [Concomitant]
     Active Substance: AMPHOTERICIN B
     Dosage: 400MG, 2X/WEEK (TUESDAY/FRIDAY)
     Route: 041
     Dates: start: 20171205

REACTIONS (1)
  - Palmar-plantar erythrodysaesthesia syndrome [Not Recovered/Not Resolved]

NARRATIVE: CASE EVENT DATE: 20171211
